FAERS Safety Report 13472106 (Version 1)
Quarter: 2017Q2

REPORT INFORMATION
  Report Type: Spontaneous
  Country: US (occurrence: US)
  Receive Date: 20170424
  Receipt Date: 20170424
  Transmission Date: 20170830
  Serious: No
  Sender: FDA-Public Use
  Company Number: US-ASTRAZENECA-2017SE39623

PATIENT
  Age: 25252 Day
  Sex: Female
  Weight: 92.5 kg

DRUGS (9)
  1. BRILINTA [Suspect]
     Active Substance: TICAGRELOR
     Indication: PROPHYLAXIS
     Route: 048
     Dates: start: 20170303
  2. ROSUVASTATIN. [Suspect]
     Active Substance: ROSUVASTATIN
     Indication: BLOOD CHOLESTEROL ABNORMAL
     Route: 048
     Dates: start: 201703
  3. CALCIUM [Concomitant]
     Active Substance: CALCIUM
     Dosage: UNKNOWN
     Route: 048
  4. METOPROLOL SUCCINATE. [Suspect]
     Active Substance: METOPROLOL SUCCINATE
     Indication: HEART RATE
     Dosage: 25.0MG UNKNOWN
     Route: 048
     Dates: start: 201508
  5. BABY ASPIRIN [Concomitant]
     Active Substance: ASPIRIN
     Dosage: 81.0MG UNKNOWN
     Route: 048
  6. METOPROLOL SUCCINATE. [Suspect]
     Active Substance: METOPROLOL SUCCINATE
     Indication: HEART RATE
     Dosage: 12.5MG UNKNOWN
     Route: 048
     Dates: end: 2012
  7. CRANBERRY PILL [Concomitant]
     Active Substance: CRANBERRY
     Route: 048
  8. LEVOTHYROXINE. [Concomitant]
     Active Substance: LEVOTHYROXINE
     Indication: THYROID DISORDER
     Route: 048
     Dates: start: 2015
  9. VITAMIN D3 [Concomitant]
     Active Substance: CHOLECALCIFEROL
     Dosage: 2000, UNKNOWN
     Route: 048

REACTIONS (7)
  - Pyrexia [Recovered/Resolved]
  - Product use issue [Unknown]
  - Agitation [Not Recovered/Not Resolved]
  - Aneurysm [Unknown]
  - Rhinorrhoea [Not Recovered/Not Resolved]
  - Sinusitis [Not Recovered/Not Resolved]
  - Off label use [Unknown]

NARRATIVE: CASE EVENT DATE: 20170307
